FAERS Safety Report 6958208-7 (Version None)
Quarter: 2010Q3

REPORT INFORMATION
  Report Type: 
  Country: None (occurrence: None)
  Receive Date: 20100830
  Receipt Date: 20100830
  Transmission Date: 20110219
  Serious: Yes (Other)
  Sender: FDA-Public Use
  Company Number: None

PATIENT
  Sex: Male

DRUGS (1)
  1. LENALIDOMIDE [Suspect]
     Indication: HODGKIN'S DISEASE REFRACTORY
     Dosage: 25 MG ONCE DAILY PO
     Route: 048

REACTIONS (5)
  - DYSPNOEA [None]
  - MUSCLE SPASMS [None]
  - MYALGIA [None]
  - PNEUMOVIRUS TEST POSITIVE [None]
  - PYREXIA [None]
